FAERS Safety Report 8618681-5 (Version None)
Quarter: 2012Q3

REPORT INFORMATION
  Report Type: 
  Country: None (occurrence: None)
  Receive Date: 20120814
  Receipt Date: 20120814
  Transmission Date: 20120928
  Serious: No
  Sender: FDA-Public Use
  Company Number: None

PATIENT
  Sex: Male
  Weight: 90.7194 kg

DRUGS (4)
  1. VENLAFAXINE [Suspect]
  2. VENLAFAXINE [Suspect]
     Indication: DEPRESSION
     Dosage: 150MG TEVA 450MG QAM PO
     Route: 048
     Dates: start: 20120808, end: 20120812
  3. VENLAFAXINE [Suspect]
  4. VENLAFAXINE [Suspect]

REACTIONS (7)
  - HEADACHE [None]
  - SOMNOLENCE [None]
  - IRRITABILITY [None]
  - SOCIAL AVOIDANT BEHAVIOUR [None]
  - NEGATIVE THOUGHTS [None]
  - PRODUCT QUALITY ISSUE [None]
  - HOT FLUSH [None]
